FAERS Safety Report 4362424-0 (Version None)
Quarter: 2004Q2

REPORT INFORMATION
  Report Type: 
  Country: None (occurrence: None)
  Receive Date: 20040521
  Receipt Date: 20040517
  Transmission Date: 20050107
  Serious: Yes (Other)
  Sender: FDA-Public Use
  Company Number: GB-BRISTOL-MYERS SQUIBB COMPANY-12588091

PATIENT
  Age: 33 Year
  Sex: Male
  Weight: 100 kg

DRUGS (10)
  1. SUSTIVA [Suspect]
     Indication: AIDS RELATED COMPLICATION
     Route: 048
     Dates: start: 20040203, end: 20040429
  2. LAMIVUDINE [Concomitant]
     Indication: AIDS RELATED COMPLICATION
     Route: 048
     Dates: start: 20040203
  3. CYCLIZINE [Concomitant]
     Indication: VOMITING
     Route: 048
     Dates: start: 20040203, end: 20040217
  4. IMODIUM [Concomitant]
     Indication: DIARRHOEA
     Route: 048
     Dates: start: 20040203, end: 20040217
  5. AMISULPRIDE [Concomitant]
     Indication: DEPRESSION
     Route: 048
     Dates: start: 19960601
  6. DIAZEPAM [Concomitant]
     Indication: ANXIETY
     Route: 048
     Dates: start: 19960601
  7. PENTAMIDINE [Concomitant]
     Indication: INFECTION PROPHYLAXIS
     Route: 055
     Dates: start: 20040127, end: 20040127
  8. LORAZEPAM [Concomitant]
     Indication: ANXIETY
     Route: 048
     Dates: start: 20060421, end: 20040506
  9. HALOPERIDOL [Concomitant]
     Indication: ANXIETY
     Route: 048
     Dates: start: 20040426, end: 20040501
  10. TEMAZEPAM [Concomitant]
     Indication: ANXIETY
     Route: 048
     Dates: start: 20040401, end: 20040421

REACTIONS (4)
  - ANXIETY [None]
  - PANIC ATTACK [None]
  - PARANOIA [None]
  - SLEEP DISORDER [None]
